FAERS Safety Report 7450327-4 (Version None)
Quarter: 2011Q2

REPORT INFORMATION
  Report Type: 
  Country: None (occurrence: None)
  Receive Date: 20110502
  Receipt Date: 20110324
  Transmission Date: 20111010
  Serious: Yes (Hospitalization, Other)
  Sender: FDA-Public Use
  Company Number: BR-BAYER-2011-023573

PATIENT
  Age: 73 Year
  Sex: Male
  Weight: 77 kg

DRUGS (23)
  1. SORAFENIB (RAF KINASE INHIBITOR) [Suspect]
     Dosage: UNK
  2. BLINDED SORAFENIB (RAF KINASE INHIBITOR) [Suspect]
     Indication: HEPATIC NEOPLASM MALIGNANT
     Dosage: 150 MG, QD
     Dates: start: 20100914, end: 20100924
  3. BUSCOPAN COMPOSTO [Suspect]
     Indication: ABDOMINAL PAIN UPPER
     Dosage: 30 MG + 750 MG
     Dates: start: 20100908
  4. RELIEV [Suspect]
     Indication: DIAGNOSTIC PROCEDURE
     Dosage: 14 G, UNK
     Dates: start: 20100908
  5. SORAFENIB (RAF KINASE INHIBITOR) [Suspect]
     Dosage: 400 MG, BID
     Route: 048
     Dates: start: 20101206, end: 20110116
  6. LUFTAL [Concomitant]
     Indication: ABDOMINAL PAIN UPPER
     Dosage: 125 MG-375 MG
     Dates: start: 20100909
  7. ORNITHINE ASPARTATE [Suspect]
     Indication: HEPATIC FAILURE
     Dosage: 3 DF, UNK
     Dates: start: 20110318, end: 20110318
  8. BLINDED SORAFENIB (RAF KINASE INHIBITOR) [Suspect]
     Dosage: 100 MG, QD
     Dates: start: 20101205, end: 20110115
  9. BLINDED SORAFENIB (RAF KINASE INHIBITOR) [Suspect]
     Dosage: 100 MG, QD
     Dates: start: 20110301, end: 20110309
  10. BLINDED SORAFENIB (RAF KINASE INHIBITOR) [Suspect]
     Dosage: 100 MG, QD
     Dates: start: 20110117, end: 20110228
  11. PROPOFOL [Suspect]
     Indication: SEDATION
     Dosage: 200 MG, UNK
     Dates: start: 20110320, end: 20110320
  12. SORAFENIB (RAF KINASE INHIBITOR) [Suspect]
     Indication: HEPATIC NEOPLASM MALIGNANT
     Dosage: 400 MG, BID
     Route: 048
     Dates: start: 20100914, end: 20100924
  13. SORAFENIB (RAF KINASE INHIBITOR) [Suspect]
     Dosage: 400 MG, BID
     Route: 048
     Dates: end: 20101205
  14. SORAFENIB (RAF KINASE INHIBITOR) [Suspect]
     Dosage: 400 MG, BID
     Route: 048
     Dates: start: 20110117, end: 20110228
  15. BLINDED SORAFENIB (RAF KINASE INHIBITOR) [Suspect]
     Dosage: 100 MG, QD
     Dates: start: 20101025, end: 20101205
  16. SORAFENIB (RAF KINASE INHIBITOR) [Suspect]
     Dosage: 400 MG, BID
     Route: 048
     Dates: start: 20101005
  17. BLINDED SORAFENIB (RAF KINASE INHIBITOR) [Suspect]
     Dosage: 100 MG, QD
     Dates: start: 20101005, end: 20101024
  18. TRAMAL [Concomitant]
     Indication: ABDOMINAL PAIN UPPER
     Dosage: 1 DF, UNK
     Dates: start: 20100908, end: 20100908
  19. SORAFENIB (RAF KINASE INHIBITOR) [Suspect]
     Dosage: 400 MG, BID
     Route: 048
     Dates: start: 20110301, end: 20110309
  20. ULTRAVIST 150 [Concomitant]
     Indication: DIAGNOSTIC PROCEDURE
     Dosage: 1.5 ML/ KG
     Dates: start: 20100908, end: 20100908
  21. NORFLOXACIN [Concomitant]
     Indication: PROPHYLAXIS
     Dosage: 400 MG, UNK
     Dates: start: 20110319
  22. LOPERAMIDE [Suspect]
     Indication: DIARRHOEA
     Dosage: 2 MG, UNK
     Dates: start: 20110318, end: 20110318
  23. METHYLPREDNISOLONE [Suspect]
     Indication: INTERSTITIAL LUNG DISEASE
     Dosage: 80 MG, UNK
     Dates: start: 20110323, end: 20110325

REACTIONS (6)
  - ENDOCARDITIS [None]
  - INFECTION [None]
  - UPPER GASTROINTESTINAL HAEMORRHAGE [None]
  - LOWER GASTROINTESTINAL HAEMORRHAGE [None]
  - HEPATIC FAILURE [None]
  - INTERSTITIAL LUNG DISEASE [None]
